FAERS Safety Report 18017426 (Version 1)
Quarter: 2020Q3

REPORT INFORMATION
  Report Type: Spontaneous
  Country: GB (occurrence: GB)
  Receive Date: 20200714
  Receipt Date: 20200714
  Transmission Date: 20201103
  Serious: Yes (Death)
  Sender: FDA-Public Use
  Company Number: GB-TEVA-2020-GB-1800110

PATIENT
  Age: 63 Year
  Sex: Male
  Weight: 74 kg

DRUGS (5)
  1. MESALAZINE [Suspect]
     Active Substance: MESALAMINE
     Dates: start: 202003, end: 202005
  2. NYSTATIN. [Suspect]
     Active Substance: NYSTATIN
     Dates: start: 20200531, end: 20200610
  3. ADALIMUMAB [Suspect]
     Active Substance: ADALIMUMAB
     Indication: COLITIS ULCERATIVE
     Dates: start: 20200528, end: 20200528
  4. OMEPRAZOLE. [Suspect]
     Active Substance: OMEPRAZOLE
     Dates: start: 20200525, end: 20200603
  5. TINZAPARIN [Suspect]
     Active Substance: TINZAPARIN
     Dates: start: 20200325, end: 20200603

REACTIONS (5)
  - Staphylococcal infection [Fatal]
  - Intestinal perforation [Fatal]
  - Sepsis [Fatal]
  - Toxic epidermal necrolysis [Fatal]
  - Klebsiella infection [Fatal]

NARRATIVE: CASE EVENT DATE: 20200607
